APPROVED DRUG PRODUCT: LACOSAMIDE
Active Ingredient: LACOSAMIDE
Strength: 50MG
Dosage Form/Route: TABLET;ORAL
Application: A214567 | Product #001
Applicant: APOTEX INC
Approved: Sep 23, 2022 | RLD: No | RS: No | Type: DISCN